FAERS Safety Report 8289446-1 (Version None)
Quarter: 2012Q2

REPORT INFORMATION
  Report Type: 
  Country: None (occurrence: None)
  Receive Date: 20120417
  Receipt Date: 20120406
  Transmission Date: 20120825
  Serious: Yes (Hospitalization, Other)
  Sender: FDA-Public Use
  Company Number: US-GENZYME-CART-1000072

PATIENT

DRUGS (2)
  1. ANTIBIOTICS [Concomitant]
     Route: 065
  2. CARTICEL [Suspect]
     Indication: CARTILAGE INJURY
     Dosage: UNK
     Route: 014
     Dates: start: 20110830, end: 20110830

REACTIONS (1)
  - POSTOPERATIVE WOUND INFECTION [None]
